FAERS Safety Report 22202694 (Version 1)
Quarter: 2023Q2

REPORT INFORMATION
  Report Type: Spontaneous
  Country: CN (occurrence: CN)
  Receive Date: 20230412
  Receipt Date: 20230412
  Transmission Date: 20230721
  Serious: Yes (Hospitalization)
  Sender: FDA-Public Use
  Company Number: CN-PFIZER INC-PV202300065822

PATIENT
  Age: 54 Year
  Sex: Female
  Weight: 47 kg

DRUGS (4)
  1. EPIRUBICIN [Suspect]
     Active Substance: EPIRUBICIN
     Indication: Neoplasm
     Dosage: 60 MG, 1X/DAY
     Dates: start: 20230227, end: 20230228
  2. EPIRUBICIN [Suspect]
     Active Substance: EPIRUBICIN
     Dosage: 50 MG, 1X/DAY
     Dates: start: 20230227, end: 20230228
  3. CYCLOPHOSPHAMIDE [Suspect]
     Active Substance: CYCLOPHOSPHAMIDE
     Indication: Neoplasm
     Dosage: 400 MG, 1X/DAY
     Route: 041
     Dates: start: 20230227, end: 20230228
  4. PACLITAXEL [Suspect]
     Active Substance: PACLITAXEL
     Indication: Neoplasm
     Dosage: 200 MG, 1X/DAY
     Dates: start: 20230227, end: 20230228

REACTIONS (1)
  - Hepatic function abnormal [Not Recovered/Not Resolved]

NARRATIVE: CASE EVENT DATE: 20230320
